FAERS Safety Report 7303021-4 (Version None)
Quarter: 2011Q1

REPORT INFORMATION
  Report Type: 
  Country: None (occurrence: None)
  Receive Date: 20110221
  Receipt Date: 20110208
  Transmission Date: 20110831
  Serious: Yes (Life-Threatening, Other)
  Sender: FDA-Public Use
  Company Number: ES-BIOGENIDEC-2011BI003101

PATIENT
  Sex: Female

DRUGS (9)
  1. CHONDROITIN SULFATE [Concomitant]
  2. CYMBALTA [Concomitant]
  3. PROPRANOLOL [Concomitant]
  4. LORMETAZEPAM [Concomitant]
  5. ESERTIA [Concomitant]
  6. ALPRAZOLAM [Concomitant]
  7. PARACETAMOL [Concomitant]
  8. TOPIRAMATE [Concomitant]
  9. TYSABRI [Suspect]
     Indication: MULTIPLE SCLEROSIS
     Route: 042
     Dates: end: 20101123

REACTIONS (2)
  - SUICIDE ATTEMPT [None]
  - OVERDOSE [None]
